FAERS Safety Report 7376512-8 (Version None)
Quarter: 2011Q1

REPORT INFORMATION
  Report Type: 
  Country: None (occurrence: None)
  Receive Date: 20110325
  Receipt Date: 20110318
  Transmission Date: 20110831
  Serious: Yes (Hospitalization)
  Sender: FDA-Public Use
  Company Number: A0902886A

PATIENT
  Age: 66 Year
  Sex: Male

DRUGS (2)
  1. OFATUMUMAB [Suspect]
     Indication: NON-HODGKIN'S LYMPHOMA
     Dosage: 1G WEEKLY
     Route: 042
     Dates: start: 20101201
  2. LENALIDOMIDE [Suspect]
     Indication: NON-HODGKIN'S LYMPHOMA
     Dosage: 10MG PER DAY
     Route: 048
     Dates: start: 20101201

REACTIONS (3)
  - FATIGUE [None]
  - LUNG INFILTRATION [None]
  - ASTHENIA [None]
